FAERS Safety Report 8426135-4 (Version None)
Quarter: 2012Q2

REPORT INFORMATION
  Report Type: 
  Country: None (occurrence: None)
  Receive Date: 20120611
  Receipt Date: 20110830
  Transmission Date: 20120825
  Serious: No
  Sender: FDA-Public Use
  Company Number: US-MYLANLABS-2011S1016243

PATIENT
  Age: 78 Year
  Sex: Male
  Weight: 58.97 kg

DRUGS (7)
  1. ASPIRIN [Concomitant]
  2. METFORMIN HCL [Concomitant]
  3. SYNTHROID [Concomitant]
  4. GLIPIZIDE [Suspect]
     Indication: HYPERGLYCAEMIA
     Route: 048
     Dates: start: 20100101
  5. GLIPIZIDE [Concomitant]
  6. GLIPIZIDE [Suspect]
     Indication: DIABETES MELLITUS
     Route: 048
     Dates: start: 20100101
  7. ACTOS [Concomitant]

REACTIONS (2)
  - ABDOMINAL PAIN [None]
  - DIARRHOEA [None]
